FAERS Safety Report 4811191-2 (Version None)
Quarter: 2005Q4

REPORT INFORMATION
  Report Type: 
  Country: None (occurrence: None)
  Receive Date: 20051027
  Receipt Date: 20051017
  Transmission Date: 20060501
  Serious: Yes (Death)
  Sender: FDA-Public Use
  Company Number: AT-JNJFOC-20051003785

PATIENT
  Sex: Male
  Weight: 61.5 kg

DRUGS (8)
  1. RISPERDAL [Suspect]
     Route: 065
  2. RISPERDAL [Suspect]
     Indication: DRUG USE FOR UNKNOWN INDICATION
     Route: 065
  3. DOMINAL FORTE [Concomitant]
     Dates: start: 20050812, end: 20050921
  4. IVADAL [Concomitant]
     Dates: start: 20050812, end: 20050921
  5. NEXIUM [Concomitant]
     Dates: start: 20050812, end: 20050929
  6. ALNA [Concomitant]
     Dates: start: 20050812, end: 20050927
  7. EBIXA [Concomitant]
  8. ACECOMB TABLETS [Concomitant]
     Route: 065

REACTIONS (2)
  - COMA [None]
  - HEPATIC ENCEPHALOPATHY [None]
